FAERS Safety Report 7472775-9 (Version None)
Quarter: 2011Q2

REPORT INFORMATION
  Report Type: 
  Country: None (occurrence: None)
  Receive Date: 20110511
  Receipt Date: 20110428
  Transmission Date: 20111010
  Serious: Yes (Other)
  Sender: FDA-Public Use
  Company Number: US-MYLANLABS-2011S1006724

PATIENT
  Age: 33 Year
  Sex: Female
  Weight: 67 kg

DRUGS (2)
  1. AMNESTEEM [Suspect]
     Indication: ACNE
     Route: 048
     Dates: start: 20101221, end: 20110124
  2. AMNESTEEM [Suspect]
     Route: 048
     Dates: start: 20110124, end: 20110311

REACTIONS (2)
  - GASTROOESOPHAGEAL REFLUX DISEASE [None]
  - URTICARIA [None]
